FAERS Safety Report 5731295-X (Version None)
Quarter: 2008Q2

REPORT INFORMATION
  Report Type: 
  Country: None (occurrence: None)
  Receive Date: 20080505
  Receipt Date: 20020731
  Transmission Date: 20081010
  Serious: Yes (Hospitalization)
  Sender: FDA-Public Use
  Company Number: 6000509

PATIENT
  Sex: Female

DRUGS (13)
  1. BISOPROLOL FUMARATE [Suspect]
     Indication: DRUG USE FOR UNKNOWN INDICATION
     Dosage: 2.5 MG, (2.5 MG,1 IN 1 D)
     Route: 048
  2. DIGOXIN [Suspect]
     Indication: DRUG USE FOR UNKNOWN INDICATION
     Dosage: 62.5 MG (62.5 MG,1 IN 1 D)
     Route: 048
  3. FUROSEMIDE [Concomitant]
  4. BENZYLPENICILLIN(BENZYLPENICILLIN) [Concomitant]
  5. FLOXACILLIN SODIUM [Concomitant]
  6. AMIODARONE HCL [Concomitant]
  7. LEVOTHYROXINE SODIUM [Concomitant]
  8. ATORVASTATIN CALCIUM [Concomitant]
  9. COLCHICINE (COLCHICINE) [Concomitant]
  10. ALLOPURINOL [Concomitant]
  11. LANSOPRAZOLE [Concomitant]
  12. NICORANDIL [Concomitant]
  13. TINZAPARIN (HEPARIN-FRACTION, SODIUM SALT) [Concomitant]

REACTIONS (2)
  - BRADYCARDIA [None]
  - DRUG INTERACTION [None]
